APPROVED DRUG PRODUCT: PREDNISONE
Active Ingredient: PREDNISONE
Strength: 5MG
Dosage Form/Route: TABLET;ORAL
Application: A087682 | Product #001
Applicant: VANGARD LABORATORIES INC DIV MIDWAY MEDICAL CO
Approved: Jan 15, 1982 | RLD: No | RS: No | Type: DISCN